FAERS Safety Report 13337162 (Version 1)
Quarter: 2017Q1

REPORT INFORMATION
  Report Type: Spontaneous
  Country: US (occurrence: US)
  Receive Date: 20170314
  Receipt Date: 20170314
  Transmission Date: 20170428
  Serious: No
  Sender: FDA-Public Use
  Company Number: US-JAZZ-2016-US-024563

PATIENT
  Age: 41 Year
  Sex: Male

DRUGS (1)
  1. CLOZAPINE. [Suspect]
     Active Substance: CLOZAPINE
     Indication: PRODUCT USED FOR UNKNOWN INDICATION
     Dosage: 300 - 500 MG, QD
     Route: 048

REACTIONS (3)
  - Salivary hypersecretion [Recovering/Resolving]
  - Tachycardia [Recovered/Resolved]
  - Hypotension [Recovered/Resolved]
